APPROVED DRUG PRODUCT: POTASSIUM PHOSPHATES
Active Ingredient: POTASSIUM PHOSPHATE, DIBASIC; POTASSIUM PHOSPHATE, MONOBASIC
Strength: 11.8GM/50ML (236MG/ML);11.2GM/50ML (224MG/ML)
Dosage Form/Route: SOLUTION;INTRAVENOUS
Application: A217892 | Product #003 | TE Code: AP
Applicant: CIPLA LTD
Approved: Jan 24, 2025 | RLD: No | RS: No | Type: RX